FAERS Safety Report 9888664 (Version 1)
Quarter: 2014Q1

REPORT INFORMATION
  Report Type: Spontaneous
  Country: US (occurrence: US)
  Receive Date: 20140211
  Receipt Date: 20140211
  Transmission Date: 20141002
  Serious: No
  Sender: FDA-Public Use
  Company Number: US-009507513-1402USA005088

PATIENT
  Sex: Female

DRUGS (1)
  1. OXYTROL FOR WOMEN [Suspect]
     Indication: URGE INCONTINENCE
     Dosage: UNK, UNKNOWN
     Route: 062

REACTIONS (4)
  - Laceration [Unknown]
  - Hyperaesthesia [Unknown]
  - Hypersensitivity [Unknown]
  - Product adhesion issue [Unknown]
